FAERS Safety Report 9612567 (Version 1)
Quarter: 2013Q4

REPORT INFORMATION
  Report Type: Report from Study
  Country: US (occurrence: US)
  Receive Date: 20131010
  Receipt Date: 20131010
  Transmission Date: 20140711
  Serious: Yes (Life-Threatening)
  Sender: FDA-Public Use
  Company Number: PHEH2013US021064

PATIENT
  Sex: Female

DRUGS (1)
  1. COMTAN [Suspect]
     Dosage: UNK UKN, UNK

REACTIONS (1)
  - Feeling abnormal [Unknown]
